FAERS Safety Report 9958400 (Version 1)
Quarter: 2014Q1

REPORT INFORMATION
  Report Type: Spontaneous
  Country: US (occurrence: US)
  Receive Date: 20140305
  Receipt Date: 20140305
  Transmission Date: 20141002
  Serious: Yes (Hospitalization, Other)
  Sender: FDA-Public Use
  Company Number: US-PFIZER INC-2014060168

PATIENT
  Age: 67 Year
  Sex: Female
  Weight: 72.56 kg

DRUGS (12)
  1. LYRICA [Suspect]
     Indication: NEUROPATHY PERIPHERAL
     Dosage: 200 MG, 2X/DAY
     Route: 048
     Dates: start: 2010
  2. LYRICA [Suspect]
     Indication: SPINAL COLUMN STENOSIS
     Dosage: 150 MG, 2X/DAY
     Route: 048
     Dates: start: 201402
  3. CELEBREX [Concomitant]
     Dosage: 200 MG, 1X/DAY
     Route: 048
  4. ASPIRIN [Concomitant]
     Dosage: 81 MG, UNK
  5. CALCIUM + VITAMIN D [Concomitant]
     Dosage: UNK
  6. LOSARTAN [Concomitant]
     Dosage: 25 MG, 1X/DAY
  7. CRESTOR [Concomitant]
     Dosage: 10 MG, 1X/DAY
  8. LETROZOLE [Concomitant]
     Dosage: 2.5 MG, 1X/DAY
  9. CITALOPRAM [Concomitant]
     Dosage: 10 MG, 1X/DAY
  10. HYDROCHLOROTHIAZIDE [Concomitant]
     Dosage: 25 MG, 2X/DAY
  11. TRAZODONE [Concomitant]
     Dosage: 50 MG, AS NEEDED
  12. BYSTOLIC [Concomitant]
     Dosage: 5 MG, 1X/DAY

REACTIONS (11)
  - Pneumonia [Unknown]
  - Malaise [Unknown]
  - Breast cancer female [Unknown]
  - Drug dispensing error [Unknown]
  - Sciatica [Unknown]
  - Pain in extremity [Unknown]
  - Burning sensation [Unknown]
  - Peripheral coldness [Unknown]
  - Back pain [Unknown]
  - Gait disturbance [Unknown]
  - Weight decreased [Unknown]
